FAERS Safety Report 18990540 (Version 3)
Quarter: 2021Q2

REPORT INFORMATION
  Report Type: Spontaneous
  Country: CH (occurrence: CH)
  Receive Date: 20210310
  Receipt Date: 20210426
  Transmission Date: 20210717
  Serious: Yes (Hospitalization)
  Sender: FDA-Public Use
  Company Number: NVSC2021CH053263

PATIENT
  Age: 76 Year
  Sex: Male

DRUGS (9)
  1. DAFALGAN [Concomitant]
     Active Substance: ACETAMINOPHEN
     Indication: PRODUCT USED FOR UNKNOWN INDICATION
     Dosage: 500 MG, TID (1?1?1) (CONTINUED TO BE ADMINISTERED AFTER DISCHARGE)
     Route: 065
     Dates: start: 20180802
  2. CONDROSULF [Concomitant]
     Active Substance: SODIUM CHONDROITIN SULFATE
     Indication: PRODUCT USED FOR UNKNOWN INDICATION
     Dosage: 800 MG, QD (1?0?0) (PRE?EXISTING UPON ADMISSION ON 02 AUGUST, STILL TAKEN UPON DISCHARGE ON 16 AUGUS
     Route: 065
  3. AMOXICILLIN,CLAVULANIC ACID [Suspect]
     Active Substance: AMOXICILLIN\CLAVULANIC ACID
     Indication: ANTIBIOTIC PROPHYLAXIS
     Dosage: 1.2 G, TID (INITIALLY)
     Route: 042
     Dates: start: 20180802
  4. AMOXICILLIN,CLAVULANIC ACID [Suspect]
     Active Substance: AMOXICILLIN\CLAVULANIC ACID
     Dosage: 2.2 G, QID (FROM THE 4TH POSTOPERATIVE DAY  IN THE CONTEXT OF CLINIC DETERIORATION)
     Route: 042
     Dates: end: 20180808
  5. LAXOBERON [Concomitant]
     Active Substance: SODIUM PICOSULFATE
     Indication: PRODUCT USED FOR UNKNOWN INDICATION
     Dosage: UNK DRP, QD (0?0?0?20) (PRE?EXISTING UPON ADMISSION ON 02 AUGUST, STILL TAKEN UPON DISCHARGE ON 16 A
     Route: 065
  6. PANTOZOL [Concomitant]
     Active Substance: PANTOPRAZOLE SODIUM
     Indication: PRODUCT USED FOR UNKNOWN INDICATION
     Dosage: 20 MG, QD (1?0?0) (PRE?EXISTING UPON ADMISSION ON 02 AUGUST, STILL TAKEN UPON DISCHARGE ON 16 AUGUST
     Route: 065
  7. TELMISARTAN. [Concomitant]
     Active Substance: TELMISARTAN
     Indication: PRODUCT USED FOR UNKNOWN INDICATION
     Dosage: 80 MG, QD (0.5?0?0) (PRE?EXISTING UPON ADMISSION ON 02 AUGUST, STILL TAKEN UPON DISCHARGE ON 16 AUGU
     Route: 065
  8. CLEXANE [Concomitant]
     Active Substance: ENOXAPARIN SODIUM
     Indication: PRODUCT USED FOR UNKNOWN INDICATION
     Dosage: 40 MG, QD (0?0?1) (NEW FROM 02 AUGUST, CONTINUES TO BE TAKEN UPON DISCHARGE ON 16 AUGUST)
     Route: 058
     Dates: start: 20180802
  9. TOREM [Concomitant]
     Active Substance: TORSEMIDE
     Indication: PRODUCT USED FOR UNKNOWN INDICATION
     Dosage: 10 MG, QD (1?0?0) (START AFTER 05 AUGUST, CONTINUES TO BE TAKEN UPON DISCHARGE ON 16 AUGUST)
     Route: 065

REACTIONS (10)
  - Confusional state [Unknown]
  - Disorientation [Unknown]
  - Vomiting [Unknown]
  - Urinary incontinence [Unknown]
  - Speech disorder [Unknown]
  - General physical health deterioration [Unknown]
  - Headache [Unknown]
  - Nausea [Unknown]
  - Pyrexia [Unknown]
  - Encephalitis [Recovered/Resolved]
